FAERS Safety Report 4355914-8 (Version None)
Quarter: 2004Q2

REPORT INFORMATION
  Report Type: 
  Country: None (occurrence: None)
  Receive Date: 20040507
  Receipt Date: 20040507
  Transmission Date: 20050107
  Serious: Yes (Hospitalization)
  Sender: FDA-Public Use
  Company Number: None

PATIENT
  Age: 68 Year
  Sex: Female
  Weight: 65.9 kg

DRUGS (9)
  1. CRESTOR [Suspect]
     Indication: HYPERLIPIDAEMIA
     Dosage: 10 MG PO QD
     Route: 048
  2. XANAX [Concomitant]
  3. LOPRESSOR [Concomitant]
  4. ASPIRIN [Concomitant]
  5. VALSARTAN [Concomitant]
  6. PROPOXYPHENE [Concomitant]
  7. GABAPENTIN [Concomitant]
  8. AMITRIPTYLINE HCL [Concomitant]
  9. FENTANYL [Concomitant]

REACTIONS (5)
  - ASTHENIA [None]
  - BLOOD CREATINE PHOSPHOKINASE INCREASED [None]
  - LETHARGY [None]
  - MENTAL STATUS CHANGES [None]
  - SCIATICA [None]
